FAERS Safety Report 16914954 (Version 4)
Quarter: 2021Q4

REPORT INFORMATION
  Report Type: Report from Study
  Country: US (occurrence: US)
  Receive Date: 20191014
  Receipt Date: 20211123
  Transmission Date: 20220303
  Serious: Yes (Hospitalization, Other)
  Sender: FDA-Public Use
  Company Number: US-BAUSCH-BL-2019-057345

PATIENT
  Age: 62 Year
  Sex: Female
  Weight: 63.5 kg

DRUGS (3)
  1. XENAZINE [Suspect]
     Active Substance: TETRABENAZINE
     Indication: Huntington^s disease
     Route: 048
     Dates: start: 20150130, end: 2018
  2. XENAZINE [Suspect]
     Active Substance: TETRABENAZINE
     Route: 048
     Dates: start: 2018
  3. XENAZINE [Suspect]
     Active Substance: TETRABENAZINE
     Dosage: 25 MG TABLET 1.5 TABLETS PO TID
     Route: 048
     Dates: start: 20200604

REACTIONS (5)
  - Neoplasm malignant [Unknown]
  - Ovarian cancer [Unknown]
  - Prescribed overdose [Unknown]
  - Therapy interrupted [Unknown]
  - Insurance issue [Unknown]

NARRATIVE: CASE EVENT DATE: 20180101
